FAERS Safety Report 19233811 (Version 1)
Quarter: 2021Q2

REPORT INFORMATION
  Report Type: Spontaneous
  Country: PL (occurrence: PL)
  Receive Date: 20210507
  Receipt Date: 20210507
  Transmission Date: 20210717
  Serious: Yes (Other)
  Sender: FDA-Public Use
  Company Number: PL-ALLERGAN-2117011US

PATIENT
  Sex: Female
  Weight: 75 kg

DRUGS (3)
  1. PRESTARIUM [Concomitant]
     Active Substance: PERINDOPRIL
  2. COMBIGAN [Suspect]
     Active Substance: BRIMONIDINE TARTRATE\TIMOLOL MALEATE
     Indication: GLAUCOMA
     Dosage: 1 GTT, QD
     Dates: start: 201707
  3. BISOCARD [Concomitant]
     Active Substance: BISOPROLOL

REACTIONS (8)
  - Influenza like illness [Recovering/Resolving]
  - Vision blurred [Recovering/Resolving]
  - Diplopia [Recovering/Resolving]
  - Vasodilatation [Recovering/Resolving]
  - Dizziness [Recovering/Resolving]
  - Inappropriate schedule of product administration [Unknown]
  - Face oedema [Recovering/Resolving]
  - Myocardial infarction [Recovering/Resolving]

NARRATIVE: CASE EVENT DATE: 201707
